FAERS Safety Report 10790368 (Version 3)
Quarter: 2016Q1

REPORT INFORMATION
  Report Type: Spontaneous
  Country: US (occurrence: US)
  Receive Date: 20150212
  Receipt Date: 20160106
  Transmission Date: 20160525
  Serious: Yes (Hospitalization, Other)
  Sender: FDA-Public Use
  Company Number: US-009507513-1502USA005663

PATIENT
  Sex: Female

DRUGS (3)
  1. VITAMINS (UNSPECIFIED) [Concomitant]
     Active Substance: VITAMINS
     Indication: PRODUCT USED FOR UNKNOWN INDICATION
     Dosage: 1 PER DAY
     Route: 065
     Dates: start: 1975
  2. FOSAMAX [Suspect]
     Active Substance: ALENDRONATE SODIUM
     Indication: OSTEOPENIA
  3. FOSAMAX [Suspect]
     Active Substance: ALENDRONATE SODIUM
     Indication: OSTEOPOROSIS
     Dosage: 70 MG, UNK
     Route: 048
     Dates: start: 1998, end: 2007

REACTIONS (7)
  - Femur fracture [Unknown]
  - Pain [Unknown]
  - Hypertension [Unknown]
  - Infection [Unknown]
  - Low turnover osteopathy [Unknown]
  - Blood cholesterol increased [Unknown]
  - Glaucoma [Unknown]

NARRATIVE: CASE EVENT DATE: 1998
